FAERS Safety Report 17048336 (Version 1)
Quarter: 2019Q4

REPORT INFORMATION
  Report Type: Spontaneous
  Country: RO (occurrence: RO)
  Receive Date: 20191119
  Receipt Date: 20191119
  Transmission Date: 20200122
  Serious: Yes (Hospitalization)
  Sender: FDA-Public Use
  Company Number: RO-MYLANLABS-2019M1109386

PATIENT
  Age: 58 Year
  Sex: Male
  Weight: 65 kg

DRUGS (4)
  1. DIAZEPAM. [Concomitant]
     Active Substance: DIAZEPAM
     Indication: PSYCHOMOTOR HYPERACTIVITY
     Dosage: 30 MILLIGRAM, QD
     Route: 048
     Dates: start: 1985
  2. TRITTICO AC [Concomitant]
     Active Substance: TRAZODONE HYDROCHLORIDE
     Indication: SLEEP DISORDER
     Dosage: 150 MILLIGRAM, QD
     Route: 048
     Dates: start: 2016
  3. OLANZAPINE. [Suspect]
     Active Substance: OLANZAPINE
     Indication: PSYCHOTIC DISORDER
     Dosage: 10 MILLIGRAM, QD
     Route: 048
     Dates: start: 20180816, end: 20190520
  4. PRAMISTAR [Concomitant]
     Active Substance: PRAMIRACETAM SULFATE
     Indication: COGNITIVE DISORDER
     Dosage: 1200 MILLIGRAM, QD
     Route: 048
     Dates: start: 2018

REACTIONS (2)
  - Hyponatraemia [Recovered/Resolved]
  - Hypokalaemia [Recovered/Resolved]

NARRATIVE: CASE EVENT DATE: 20190520
